FAERS Safety Report 5342029-5 (Version None)
Quarter: 2007Q2

REPORT INFORMATION
  Report Type: 
  Country: None (occurrence: None)
  Receive Date: 20070530
  Receipt Date: 20070530
  Transmission Date: 20071010
  Serious: Yes (Other)
  Sender: FDA-Public Use
  Company Number: None

PATIENT
  Age: 23 Year
  Sex: Female
  Weight: 81.6475 kg

DRUGS (1)
  1. ORTHO EVRA [Suspect]
     Indication: CONTRACEPTION
     Dosage: 1 PATCH 1 WEEK TRANSDERMAL
     Route: 062
     Dates: start: 20070101, end: 20070516

REACTIONS (1)
  - DEEP VEIN THROMBOSIS [None]
